FAERS Safety Report 22585897 (Version 2)
Quarter: 2024Q4

REPORT INFORMATION
  Report Type: Report from Study
  Country: US (occurrence: US)
  Receive Date: 20230610
  Receipt Date: 20241001
  Transmission Date: 20250115
  Serious: Yes (Hospitalization)
  Sender: NOVARTIS
  Company Number: US-002147023-NVSC2023US130186

PATIENT
  Sex: Female
  Weight: 41.73 kg

DRUGS (2)
  1. ENTRESTO [Suspect]
     Active Substance: SACUBITRIL\VALSARTAN
     Indication: Organising pneumonia
     Dosage: UNK UNK, BID
     Route: 065
     Dates: start: 20230501
  2. ENTRESTO [Suspect]
     Active Substance: SACUBITRIL\VALSARTAN
     Indication: Cardiac failure congestive

REACTIONS (6)
  - Pulmonary oedema [Unknown]
  - Dyspnoea [Unknown]
  - Memory impairment [Unknown]
  - Blood potassium decreased [Unknown]
  - Blood sodium decreased [Unknown]
  - Confusional state [Unknown]
